FAERS Safety Report 4627737-3 (Version None)
Quarter: 2005Q2

REPORT INFORMATION
  Report Type: 
  Country: None (occurrence: None)
  Receive Date: 20050401
  Receipt Date: 20050322
  Transmission Date: 20051028
  Serious: Yes (Hospitalization)
  Sender: FDA-Public Use
  Company Number: 2005-126528-NL

PATIENT
  Age: 16 Year
  Sex: Female

DRUGS (14)
  1. MIRTAZAPINE [Suspect]
     Indication: ANXIETY
     Dosage: 7.5 MG/7.5 MG/7.5 MG/DF; ORAL
     Route: 048
     Dates: start: 20041203, end: 20041217
  2. MIRTAZAPINE [Suspect]
     Indication: DEPRESSION
     Dosage: 7.5 MG/7.5 MG/7.5 MG/DF; ORAL
     Route: 048
     Dates: start: 20041203, end: 20041217
  3. MIRTAZAPINE [Suspect]
     Indication: SLEEP DISORDER
     Dosage: 7.5 MG/7.5 MG/7.5 MG/DF; ORAL
     Route: 048
     Dates: start: 20041203, end: 20041217
  4. MIRTAZAPINE [Suspect]
     Indication: ANXIETY
     Dosage: 7.5 MG/7.5 MG/7.5 MG/DF; ORAL
     Route: 048
     Dates: start: 20041218, end: 20050126
  5. MIRTAZAPINE [Suspect]
     Indication: DEPRESSION
     Dosage: 7.5 MG/7.5 MG/7.5 MG/DF; ORAL
     Route: 048
     Dates: start: 20041218, end: 20050126
  6. MIRTAZAPINE [Suspect]
     Indication: SLEEP DISORDER
     Dosage: 7.5 MG/7.5 MG/7.5 MG/DF; ORAL
     Route: 048
     Dates: start: 20041218, end: 20050126
  7. MIRTAZAPINE [Suspect]
     Indication: ANXIETY
     Dosage: 7.5 MG/7.5 MG/7.5 MG/DF; ORAL
     Route: 048
     Dates: start: 20050127, end: 20050203
  8. MIRTAZAPINE [Suspect]
     Indication: DEPRESSION
     Dosage: 7.5 MG/7.5 MG/7.5 MG/DF; ORAL
     Route: 048
     Dates: start: 20050127, end: 20050203
  9. MIRTAZAPINE [Suspect]
     Indication: SLEEP DISORDER
     Dosage: 7.5 MG/7.5 MG/7.5 MG/DF; ORAL
     Route: 048
     Dates: start: 20050127, end: 20050203
  10. MIRTAZAPINE [Suspect]
     Indication: ANXIETY
     Dosage: 7.5 MG/7.5 MG/7.5 MG/DF; ORAL
     Route: 048
     Dates: start: 20050203
  11. MIRTAZAPINE [Suspect]
     Indication: DEPRESSION
     Dosage: 7.5 MG/7.5 MG/7.5 MG/DF; ORAL
     Route: 048
     Dates: start: 20050203
  12. MIRTAZAPINE [Suspect]
     Indication: SLEEP DISORDER
     Dosage: 7.5 MG/7.5 MG/7.5 MG/DF; ORAL
     Route: 048
     Dates: start: 20050203
  13. FLUOXETINE [Concomitant]
  14. ... [Concomitant]

REACTIONS (5)
  - BLOOD CREATINE PHOSPHOKINASE INCREASED [None]
  - EPILEPSY [None]
  - INSOMNIA [None]
  - LOSS OF CONSCIOUSNESS [None]
  - MUSCLE TWITCHING [None]
